FAERS Safety Report 7706511-5 (Version None)
Quarter: 2011Q3

REPORT INFORMATION
  Report Type: 
  Country: None (occurrence: None)
  Receive Date: 20110824
  Receipt Date: 20110818
  Transmission Date: 20111222
  Serious: Yes (Other)
  Sender: FDA-Public Use
  Company Number: FR-PFIZER INC-2011190245

PATIENT
  Age: 37 Year
  Sex: Female

DRUGS (6)
  1. CALCIUM CARBONATE [Concomitant]
     Dosage: 1 DF, 1X/DAY
  2. EPIRUBICIN HYDROCHLORIDE [Suspect]
     Dosage: 186 MG, CYCLIC
     Route: 041
     Dates: start: 20110414, end: 20110414
  3. FLUOROURACIL [Suspect]
     Dosage: 930 MG, CYCLIC
     Route: 041
     Dates: start: 20110414, end: 20110414
  4. HERBAL PREPARATION [Suspect]
     Indication: PROPHYLAXIS
     Dosage: UNK
     Route: 048
     Dates: start: 20110401
  5. MIRENA [Concomitant]
     Indication: CONTRACEPTION
  6. CYCLOPHOSPHAMIDE [Suspect]
     Dosage: 930 MG, CYCLIC
     Route: 041
     Dates: start: 20110414, end: 20110414

REACTIONS (1)
  - CYTOLYTIC HEPATITIS [None]
